FAERS Safety Report 21330409 (Version 4)
Quarter: 2022Q4

REPORT INFORMATION
  Report Type: Spontaneous
  Country: FR (occurrence: FR)
  Receive Date: 20220913
  Receipt Date: 20221114
  Transmission Date: 20230113
  Serious: Yes (Other)
  Sender: FDA-Public Use
  Company Number: FR-ORGANON-O2209FRA000646

PATIENT
  Age: 16 Year
  Sex: Female

DRUGS (2)
  1. NEXPLANON [Suspect]
     Active Substance: ETONOGESTREL
     Dosage: 1 IMPLANT IN LEFT ARM, 3 CM FROM THE EPICONDYLE, BELOW THE SULCUS
     Route: 059
     Dates: start: 20200228, end: 20220902
  2. NEXPLANON [Suspect]
     Active Substance: ETONOGESTREL
     Dosage: 1 IMPLANT IN RIGHT ARM
     Route: 059
     Dates: start: 202209

REACTIONS (10)
  - Pain [Recovering/Resolving]
  - Device dislocation [Recovered/Resolved]
  - Sensory disturbance [Unknown]
  - Muscle contractions involuntary [Unknown]
  - Implant site pain [Recovered/Resolved]
  - Electric shock sensation [Unknown]
  - Paraesthesia [Recovering/Resolving]
  - Device placement issue [Recovered/Resolved]
  - Device placement issue [Not Recovered/Not Resolved]
  - Complication associated with device [Recovered/Resolved]

NARRATIVE: CASE EVENT DATE: 20200228
